FAERS Safety Report 5856617-0 (Version None)
Quarter: 2008Q3

REPORT INFORMATION
  Report Type: 
  Country: None (occurrence: None)
  Receive Date: 20080822
  Receipt Date: 20080822
  Transmission Date: 20090109
  Serious: Yes (Other)
  Sender: FDA-Public Use
  Company Number: None

PATIENT
  Age: 58 Year
  Sex: Male
  Weight: 90.7194 kg

DRUGS (1)
  1. OMEPRAZOLE OTC 10MG [Suspect]
     Indication: HYPERCHLORHYDRIA
     Dosage: 2X10MG DAILY PO
     Route: 048
     Dates: start: 20070901, end: 20080619

REACTIONS (4)
  - DISEASE RECURRENCE [None]
  - DIVERTICULITIS [None]
  - IMPAIRED WORK ABILITY [None]
  - MALAISE [None]
